FAERS Safety Report 12840655 (Version 1)
Quarter: 2016Q4

REPORT INFORMATION
  Report Type: Spontaneous
  Country: DE (occurrence: DE)
  Receive Date: 20161012
  Receipt Date: 20161012
  Transmission Date: 20170207
  Serious: Yes (Hospitalization, Other)
  Sender: FDA-Public Use
  Company Number: PHHY2016DE137417

PATIENT
  Age: 23 Year
  Sex: Female
  Weight: 83 kg

DRUGS (1)
  1. CIPROFLOXACIN. [Suspect]
     Active Substance: CIPROFLOXACIN
     Indication: GENERAL SYMPTOM
     Dosage: 500 MG, BID
     Route: 065

REACTIONS (3)
  - Brain oedema [Recovered/Resolved]
  - Acute hepatic failure [Recovered/Resolved]
  - Hepatic encephalopathy [Recovered/Resolved]
